FAERS Safety Report 20845651 (Version 1)
Quarter: 2022Q2

REPORT INFORMATION
  Report Type: Spontaneous
  Country: CN (occurrence: CN)
  Receive Date: 20220518
  Receipt Date: 20220518
  Transmission Date: 20220721
  Serious: No
  Sender: FDA-Public Use
  Company Number: CN-LUPIN PHARMACEUTICALS INC.-2022-07085

PATIENT
  Age: 69 Year
  Sex: Female

DRUGS (13)
  1. OSELTAMIVIR [Suspect]
     Active Substance: OSELTAMIVIR
     Indication: COVID-19 pneumonia
     Dosage: UNK
     Route: 065
  2. UMIFENOVIR [Suspect]
     Active Substance: UMIFENOVIR
     Indication: COVID-19 pneumonia
     Dosage: UNK
     Route: 065
  3. CEFOPERAZONE SODIUM\SULBACTAM SODIUM [Concomitant]
     Active Substance: CEFOPERAZONE SODIUM\SULBACTAM SODIUM
     Indication: Antibiotic therapy
     Dosage: UNK
     Route: 065
  4. MOXIFLOXACIN [Concomitant]
     Active Substance: MOXIFLOXACIN
     Indication: Antibiotic therapy
     Route: 065
  5. PIPERACILLIN [Concomitant]
     Active Substance: PIPERACILLIN
     Indication: Antibiotic therapy
     Dosage: UNK
     Route: 065
  6. TAZOBACTAM [Concomitant]
     Active Substance: TAZOBACTAM
     Indication: Antibiotic therapy
     Dosage: UNK
     Route: 065
  7. VANCOMYCIN [Concomitant]
     Active Substance: VANCOMYCIN
     Indication: Antibiotic therapy
     Dosage: UNK
     Route: 065
  8. POLYMYXIN B [Concomitant]
     Active Substance: POLYMYXIN B
     Indication: Antibiotic therapy
     Dosage: UNK
     Route: 065
  9. TIGECYCLINE [Concomitant]
     Active Substance: TIGECYCLINE
     Indication: Antibiotic therapy
     Dosage: UNK
     Route: 065
  10. VORICONAZOLE [Concomitant]
     Active Substance: VORICONAZOLE
     Indication: Antifungal treatment
     Dosage: UNK
     Route: 065
  11. MICAFUNGIN [Concomitant]
     Active Substance: MICAFUNGIN
     Indication: Antifungal treatment
     Dosage: UNK
     Route: 065
  12. HUMAN IMMUNOGLOBULIN G [Concomitant]
     Active Substance: HUMAN IMMUNOGLOBULIN G
     Indication: Antiinflammatory therapy
     Dosage: UNK
     Route: 042
  13. METHYLPREDNISOLONE [Concomitant]
     Active Substance: METHYLPREDNISOLONE
     Indication: Antiinflammatory therapy
     Dosage: UNK
     Route: 065

REACTIONS (1)
  - Off label use [Unknown]
